FAERS Safety Report 4459023-9 (Version None)
Quarter: 2004Q3

REPORT INFORMATION
  Report Type: 
  Country: None (occurrence: None)
  Receive Date: 20040923
  Receipt Date: 20040923
  Transmission Date: 20050211
  Serious: Yes (Other)
  Sender: FDA-Public Use
  Company Number: None

PATIENT
  Age: 50 Year
  Sex: Female
  Weight: 48.9885 kg

DRUGS (1)
  1. BOTOX COSMETIC [Suspect]

REACTIONS (2)
  - FEAR [None]
  - MALAISE [None]
